FAERS Safety Report 19018293 (Version 5)
Quarter: 2021Q2

REPORT INFORMATION
  Report Type: Spontaneous
  Country: US (occurrence: US)
  Receive Date: 20210316
  Receipt Date: 20210511
  Transmission Date: 20210717
  Serious: Yes (Other)
  Sender: FDA-Public Use
  Company Number: US-SA-2021SA078247

PATIENT

DRUGS (1)
  1. APIDRA [Suspect]
     Active Substance: INSULIN GLULISINE
     Dosage: 15 IU
     Route: 058
     Dates: start: 20210209

REACTIONS (12)
  - Internal injury [Unknown]
  - Thrombosis [Unknown]
  - Splenic infarction [Unknown]
  - Pancreatitis [Unknown]
  - Aortic thrombosis [Unknown]
  - Skin tightness [Unknown]
  - Oxygen saturation decreased [Unknown]
  - Headache [Unknown]
  - Product quality issue [Unknown]
  - Pancreatic steatosis [Unknown]
  - Platelet count increased [Unknown]
  - Pain [Unknown]
